FAERS Safety Report 15351120 (Version 6)
Quarter: 2018Q4

REPORT INFORMATION
  Report Type: Report from Study
  Country: DE (occurrence: DE)
  Receive Date: 20180905
  Receipt Date: 20181023
  Transmission Date: 20190204
  Serious: Yes (Hospitalization)
  Sender: FDA-Public Use
  Company Number: DE-ROCHE-2180025

PATIENT
  Age: 83 Year
  Sex: Female
  Weight: 83 kg

DRUGS (15)
  1. KALINOR (POTASSIUM BICARBONATE\POTASSIUM CITRATE) [Concomitant]
     Active Substance: POTASSIUM BICARBONATE\POTASSIUM CITRATE
  2. VIGANTOLETTEN [Concomitant]
     Active Substance: CHOLECALCIFEROL
  3. VEMURAFENIB. [Suspect]
     Active Substance: VEMURAFENIB
     Dosage: LAST DOSE PRIOR TO SAE MALAISE: 22/SEP/2018
     Route: 048
     Dates: start: 20180811
  4. COBIMETINIB. [Suspect]
     Active Substance: COBIMETINIB
     Indication: MALIGNANT MELANOMA
     Dosage: LAST DOSE PRIOR TO SAE DYSPNEA: 01/SEP/2018
     Route: 048
     Dates: start: 20180810
  5. COBIMETINIB. [Suspect]
     Active Substance: COBIMETINIB
     Dosage: LAST DOSE PRIOR TO SAE MALAISE: 22/SEP/2018
     Route: 048
     Dates: start: 20180811
  6. BECLOMETASON INHAL.AER. [Concomitant]
  7. NOVAMINSULFON [Concomitant]
     Active Substance: METAMIZOLE
  8. L THYROXIN [Concomitant]
     Active Substance: LEVOTHYROXINE SODIUM
  9. TORASEMID [Concomitant]
     Active Substance: TORSEMIDE
  10. MARCUMAR [Concomitant]
     Active Substance: PHENPROCOUMON
  11. NORVASC [Concomitant]
     Active Substance: AMLODIPINE BESYLATE
  12. ESOMEPRAZOL [Concomitant]
     Active Substance: ESOMEPRAZOLE
  13. VEMURAFENIB. [Suspect]
     Active Substance: VEMURAFENIB
     Indication: MALIGNANT MELANOMA
     Dosage: LAST DOSE PRIOR TO SAE DYSPNEA: 02/SEP/2018
     Route: 048
     Dates: start: 20180810, end: 20180902
  14. ATACAND PLUS [Concomitant]
     Active Substance: CANDESARTAN CILEXETIL\HYDROCHLOROTHIAZIDE
  15. BISOPROLOL [Concomitant]
     Active Substance: BISOPROLOL

REACTIONS (4)
  - Malaise [Unknown]
  - Syncope [Recovered/Resolved]
  - Dyspnoea [Unknown]
  - Fall [Unknown]

NARRATIVE: CASE EVENT DATE: 20180903
